FAERS Safety Report 8471965-6 (Version None)
Quarter: 2012Q2

REPORT INFORMATION
  Report Type: 
  Country: None (occurrence: None)
  Receive Date: 20120627
  Receipt Date: 20120615
  Transmission Date: 20120825
  Serious: Yes (Hospitalization)
  Sender: FDA-Public Use
  Company Number: US-BAYER-2012-009934

PATIENT
  Sex: Female

DRUGS (1)
  1. MIRENA [Suspect]
     Indication: ENDOMETRIOSIS

REACTIONS (5)
  - UTERINE PERFORATION [None]
  - PROCEDURAL PAIN [None]
  - UTERINE SPASM [None]
  - DEVICE DISLOCATION [None]
  - COMPLICATION OF DEVICE INSERTION [None]
